FAERS Safety Report 15904143 (Version 1)
Quarter: 2019Q1

REPORT INFORMATION
  Report Type: Spontaneous
  Country: CA (occurrence: CA)
  Receive Date: 20190204
  Receipt Date: 20190204
  Transmission Date: 20190417
  Serious: Yes (Other)
  Sender: FDA-Public Use
  Company Number: CA-TEVA-2019-CA-1007203

PATIENT
  Age: 33 Year
  Sex: Female

DRUGS (4)
  1. SAPHRIS [Suspect]
     Active Substance: ASENAPINE MALEATE
     Indication: SCHIZOPHRENIA
     Route: 065
  2. HALOPERIDOL. [Suspect]
     Active Substance: HALOPERIDOL
     Indication: SCHIZOPHRENIA
     Route: 065
  3. ABILIFY [Suspect]
     Active Substance: ARIPIPRAZOLE
     Indication: SCHIZOPHRENIA
     Route: 048
  4. FLUPHENAZINE DECANOATE. [Suspect]
     Active Substance: FLUPHENAZINE DECANOATE
     Indication: SCHIZOPHRENIA
     Route: 048

REACTIONS (11)
  - Dystonia [Unknown]
  - Suicide attempt [Unknown]
  - Akathisia [Unknown]
  - Drug effect incomplete [Unknown]
  - Orthostatic hypertension [Unknown]
  - Hypercholesterolaemia [Unknown]
  - Sedation [Unknown]
  - Anosognosia [Unknown]
  - Parkinsonism [Unknown]
  - Schizophrenia [Unknown]
  - Weight increased [Unknown]
